FAERS Safety Report 24604050 (Version 3)
Quarter: 2025Q2

REPORT INFORMATION
  Report Type: Report from Study
  Country: US (occurrence: US)
  Receive Date: 20241111
  Receipt Date: 20250519
  Transmission Date: 20250717
  Serious: No
  Sender: ABBVIE
  Company Number: US-ABBVIE-5993751

PATIENT
  Sex: Female

DRUGS (1)
  1. SKYRIZI [Suspect]
     Active Substance: RISANKIZUMAB-RZAA
     Indication: Crohn^s disease
     Route: 058
     Dates: start: 202403

REACTIONS (6)
  - Probiotic therapy [Unknown]
  - Crohn^s disease [Unknown]
  - Malaise [Recovered/Resolved]
  - Frequent bowel movements [Unknown]
  - Anal incontinence [Unknown]
  - Therapeutic response shortened [Unknown]
